FAERS Safety Report 24433113 (Version 2)
Quarter: 2024Q4

REPORT INFORMATION
  Report Type: Spontaneous
  Country: US (occurrence: US)
  Receive Date: 20241014
  Receipt Date: 20241129
  Transmission Date: 20250114
  Serious: Yes (Hospitalization, Other)
  Sender: ELI LILLY AND COMPANY
  Company Number: US-ELI_LILLY_AND_COMPANY-US202410002871

PATIENT
  Age: 69 Year
  Sex: Female
  Weight: 125 kg

DRUGS (3)
  1. CYMBALTA [Suspect]
     Active Substance: DULOXETINE HYDROCHLORIDE
     Indication: Pain
     Dosage: 30 MG, BID
     Route: 048
     Dates: start: 201704, end: 20171019
  2. CYMBALTA [Suspect]
     Active Substance: DULOXETINE HYDROCHLORIDE
     Dosage: 30 MG, BID
     Route: 048
     Dates: start: 201711, end: 201711
  3. CYMBALTA [Suspect]
     Active Substance: DULOXETINE HYDROCHLORIDE
     Dosage: 60 MG, BID
     Route: 048
     Dates: start: 201712, end: 2022

REACTIONS (26)
  - Oesophageal haemorrhage [Not Recovered/Not Resolved]
  - Failure to thrive [Not Recovered/Not Resolved]
  - Erosive oesophagitis [Recovered/Resolved]
  - Erosive oesophagitis [Unknown]
  - Weight decreased [Recovering/Resolving]
  - Dehydration [Unknown]
  - Wrong technique in product usage process [Recovered/Resolved]
  - Eating disorder [Not Recovered/Not Resolved]
  - Pallor [Unknown]
  - Balance disorder [Unknown]
  - Cognitive disorder [Unknown]
  - Dyspnoea [Unknown]
  - Hypertension [Unknown]
  - Electric shock sensation [Recovered/Resolved]
  - Tremor [Unknown]
  - Drug ineffective [Recovered/Resolved]
  - Paraesthesia [Recovered/Resolved]
  - Fatigue [Recovered/Resolved]
  - Hypoaesthesia [Recovered/Resolved]
  - Drug withdrawal syndrome [Unknown]
  - Chills [Unknown]
  - Gastritis [Unknown]
  - Anxiety [Unknown]
  - Dizziness [Unknown]
  - Nausea [Not Recovered/Not Resolved]
  - Vomiting [Not Recovered/Not Resolved]

NARRATIVE: CASE EVENT DATE: 20170101
